FAERS Safety Report 18355402 (Version 1)
Quarter: 2020Q4

REPORT INFORMATION
  Report Type: Spontaneous
  Country: US (occurrence: US)
  Receive Date: 20201006
  Receipt Date: 20201006
  Transmission Date: 20210114
  Serious: Yes (Life-Threatening)
  Sender: FDA-Public Use
  Company Number: None

PATIENT
  Age: 61 Year
  Sex: Male
  Weight: 179.17 kg

DRUGS (2)
  1. LINEZOLID (LINEZOLID 600MG TAB) [Suspect]
     Active Substance: LINEZOLID
     Route: 048
     Dates: start: 20200818, end: 20200822
  2. DEXTROSE/HEPARIN (HEPARIN NA 100UNT/ML DEXTROSE 5% INJ) [Suspect]
     Active Substance: DEXTROSE\HEPARIN
     Indication: ATRIAL FIBRILLATION
     Dates: start: 20200817, end: 20200824

REACTIONS (1)
  - Thrombocytopenia [None]

NARRATIVE: CASE EVENT DATE: 20200924
